FAERS Safety Report 10178410 (Version 2)
Quarter: 2014Q2

REPORT INFORMATION
  Report Type: Spontaneous
  Country: US (occurrence: US)
  Receive Date: 20140519
  Receipt Date: 20140519
  Transmission Date: 20141212
  Serious: No
  Sender: FDA-Public Use
  Company Number: US-DRREDDYS-USA/USA/13/0035458

PATIENT
  Age: 89 Year
  Sex: Female

DRUGS (3)
  1. RANITIDINE TABLETS 75 MG (RANITIDINE HYDROCHLORIDE) [Suspect]
     Indication: DYSPHONIA
     Route: 048
  2. RANITIDINE TABLETS 75 MG (RANITIDINE HYDROCHLORIDE) [Suspect]
     Indication: OROPHARYNGEAL PAIN
  3. MAGNESIUM [Concomitant]
     Indication: PRODUCT USED FOR UNKNOWN INDICATION
     Route: 065

REACTIONS (1)
  - Diarrhoea [Not Recovered/Not Resolved]
